FAERS Safety Report 18984490 (Version 1)
Quarter: 2021Q1

REPORT INFORMATION
  Report Type: Spontaneous
  Country: DE (occurrence: DE)
  Receive Date: 20210308
  Receipt Date: 20210308
  Transmission Date: 20210420
  Serious: Yes (Hospitalization)
  Sender: FDA-Public Use
  Company Number: DE-009507513-2103DEU001330

PATIENT
  Age: 43 Year
  Sex: Female

DRUGS (7)
  1. PANTOPRAZOLE [Concomitant]
     Active Substance: PANTOPRAZOLE
     Dosage: 40 MILLIGRAM, 1?0?0?0
  2. DIPYRONE [Concomitant]
     Active Substance: DIPYRONE
     Dosage: 1 G, AS NEEDED
  3. LACTULOSE. [Concomitant]
     Active Substance: LACTULOSE
     Dosage: 1X
  4. CHOLECALCIFEROL [Concomitant]
     Active Substance: CHOLECALCIFEROL
     Dosage: 1000 I.U., 1?0?0?0 (ONCE IN THE MORNING)
  5. PEMETREXED DISODIUM [Suspect]
     Active Substance: PEMETREXED DISODIUM
     Dosage: LAST DOSE 23?DEC?2019
     Dates: end: 20191223
  6. FOLIC ACID. [Concomitant]
     Active Substance: FOLIC ACID
     Dosage: 10 MG, 1?0?0?0
  7. MK?3475 [Suspect]
     Active Substance: PEMBROLIZUMAB
     Dosage: LAST DOSE 23?DEC?2019
     Dates: end: 20191223

REACTIONS (6)
  - Anaemia [Recovering/Resolving]
  - Cough [Recovering/Resolving]
  - Dyspnoea [Recovering/Resolving]
  - Upper respiratory tract infection [Recovering/Resolving]
  - Localised infection [Recovering/Resolving]
  - General physical health deterioration [Recovering/Resolving]
